FAERS Safety Report 4463731-3 (Version None)
Quarter: 2004Q3

REPORT INFORMATION
  Report Type: 
  Country: None (occurrence: None)
  Receive Date: 20040929
  Receipt Date: 20040913
  Transmission Date: 20050211
  Serious: Yes (Hospitalization)
  Sender: FDA-Public Use
  Company Number: JP_040904506

PATIENT
  Age: 56 Year
  Sex: Female

DRUGS (1)
  1. EVISTA [Suspect]
     Indication: OSTEOPOROSIS
     Dosage: 60 MG/ 1 DAY
     Dates: start: 20040625, end: 20040817

REACTIONS (2)
  - PLATELET COUNT DECREASED [None]
  - PURPURA [None]
